FAERS Safety Report 6288580-5 (Version None)
Quarter: 2009Q3

REPORT INFORMATION
  Report Type: 
  Country: None (occurrence: None)
  Receive Date: 20090727
  Receipt Date: 20090716
  Transmission Date: 20100115
  Serious: Yes (Other)
  Sender: FDA-Public Use
  Company Number: 2009AP002916

PATIENT
  Age: 23 Year
  Sex: Female

DRUGS (6)
  1. CITALOPRAM HYDROBROMIDE [Suspect]
     Indication: HEADACHE
     Dosage: 20 MG;PO
     Route: 048
     Dates: start: 20090604, end: 20090604
  2. CITALOPRAM HYDROBROMIDE [Suspect]
     Indication: PSYCHIATRIC SYMPTOM
     Dosage: 20 MG;PO
     Route: 048
     Dates: start: 20090604, end: 20090604
  3. AMPHETAMINE SULFATE [Concomitant]
  4. COCAINE (COCAINE) [Concomitant]
  5. IBUPROFEN [Concomitant]
  6. PARACETAMOL (PARACETAMOL) [Concomitant]

REACTIONS (3)
  - DIZZINESS [None]
  - DYSPNOEA [None]
  - THROAT TIGHTNESS [None]
